FAERS Safety Report 9752007 (Version 1)
Quarter: 2013Q4

REPORT INFORMATION
  Report Type: Spontaneous
  Country: US (occurrence: None)
  Receive Date: 20131211
  Receipt Date: 20131211
  Transmission Date: 20140711
  Serious: Yes (Hospitalization)
  Sender: FDA-Public Use
  Company Number: None

PATIENT
  Age: 69 Year
  Sex: 0
  Weight: 89 kg

DRUGS (1)
  1. MEPIVACAINE [Suspect]

REACTIONS (2)
  - Hypokinesia [None]
  - Circulatory collapse [None]
